FAERS Safety Report 5913435-2 (Version None)
Quarter: 2008Q4

REPORT INFORMATION
  Report Type: 
  Country: None (occurrence: None)
  Receive Date: 20081007
  Receipt Date: 20080924
  Transmission Date: 20090506
  Serious: Yes (Hospitalization)
  Sender: FDA-Public Use
  Company Number: GXKR2008GB09214

PATIENT
  Age: 75 Year
  Sex: Female

DRUGS (7)
  1. GABAPENTIN [Suspect]
     Indication: ANALGESIA
     Dosage: 300 MG, TID
  2. DICLOFENAC SODIUM [Concomitant]
  3. TRAMADOL HCL [Concomitant]
  4. DIHYDROCODEINE COMPOUND [Concomitant]
  5. FUROSEMIDE [Concomitant]
  6. AMLODIPINE (AMLODIPINE) [Concomitant]
  7. IRBESARTAN [Concomitant]

REACTIONS (22)
  - ANAEMIA [None]
  - BILIARY TRACT INFECTION [None]
  - BODY TEMPERATURE INCREASED [None]
  - CONTUSION [None]
  - DRUG TOXICITY [None]
  - DYSPNOEA [None]
  - FALL [None]
  - GENERAL PHYSICAL HEALTH DETERIORATION [None]
  - HAEMODIALYSIS [None]
  - HYPOTENSION [None]
  - LIVER FUNCTION TEST ABNORMAL [None]
  - LOSS OF CONSCIOUSNESS [None]
  - MOVEMENT DISORDER [None]
  - MYOCLONUS [None]
  - OSTEOARTHRITIS [None]
  - RENAL CYST [None]
  - RENAL FAILURE ACUTE [None]
  - RENAL IMPAIRMENT [None]
  - RESPIRATORY FAILURE [None]
  - SEPTIC SHOCK [None]
  - SOMNOLENCE [None]
  - URAEMIC ENCEPHALOPATHY [None]
